FAERS Safety Report 8257548-1 (Version None)
Quarter: 2012Q2

REPORT INFORMATION
  Report Type: 
  Country: None (occurrence: None)
  Receive Date: 20120403
  Receipt Date: 20120403
  Transmission Date: 20120825
  Serious: Yes (Other)
  Sender: FDA-Public Use
  Company Number: PT-ABBOTT-10P-130-0643984-00

PATIENT
  Age: 10 Year
  Sex: Female
  Weight: 23.9 kg

DRUGS (2)
  1. SEROSTIM [Concomitant]
     Indication: PRECOCIOUS PUBERTY
     Dates: start: 20070101
  2. LEUPROLIDE ACETATE [Suspect]
     Indication: PRECOCIOUS PUBERTY
     Dates: start: 20091101, end: 20100401

REACTIONS (5)
  - LIMB DEFORMITY [None]
  - INJECTION SITE ABSCESS [None]
  - ESCHAR [None]
  - SOFT TISSUE NECROSIS [None]
  - EMOTIONAL DISTRESS [None]
